FAERS Safety Report 4516956-2 (Version None)
Quarter: 2004Q4

REPORT INFORMATION
  Report Type: 
  Country: None (occurrence: None)
  Receive Date: 20041202
  Receipt Date: 20041125
  Transmission Date: 20050328
  Serious: Yes (Hospitalization)
  Sender: FDA-Public Use
  Company Number: FR-BRISTOL-MYERS SQUIBB COMPANY-12776019

PATIENT
  Age: 66 Year
  Sex: Female

DRUGS (5)
  1. APROVEL [Suspect]
     Indication: HYPERTENSION
     Route: 048
     Dates: start: 20030601
  2. EURELIX [Suspect]
     Indication: HYPERTENSION
     Route: 048
     Dates: start: 20030601, end: 20030615
  3. LIPANTHYL [Suspect]
     Indication: HYPERCHOLESTEROLAEMIA
     Route: 048
     Dates: start: 20030601, end: 20030615
  4. TAHOR [Suspect]
     Indication: HYPERCHOLESTEROLAEMIA
     Route: 048
     Dates: start: 20030601
  5. PIPRAM [Suspect]
     Indication: URINARY TRACT INFECTION
     Route: 048
     Dates: start: 20030601, end: 20030615

REACTIONS (3)
  - NEPHRITIS INTERSTITIAL [None]
  - RENAL IMPAIRMENT [None]
  - RENAL TUBULAR DISORDER [None]
